FAERS Safety Report 8116249-0 (Version None)
Quarter: 2012Q1

REPORT INFORMATION
  Report Type: 
  Country: None (occurrence: None)
  Receive Date: 20120131
  Receipt Date: 20120123
  Transmission Date: 20120608
  Serious: Yes (Hospitalization)
  Sender: FDA-Public Use
  Company Number: 2012SP004329

PATIENT
  Age: 9 Year
  Sex: Male

DRUGS (1)
  1. BETAMETHASONE DIPROPIONATE [Suspect]
     Indication: SEASONAL ALLERGY
     Dosage: TOP
     Route: 061

REACTIONS (1)
  - DRUG HYPERSENSITIVITY [None]
